FAERS Safety Report 9424366 (Version 1)
Quarter: 2013Q3

REPORT INFORMATION
  Report Type: Spontaneous
  Country: US (occurrence: US)
  Receive Date: 20130729
  Receipt Date: 20130729
  Transmission Date: 20140515
  Serious: Yes (Hospitalization)
  Sender: FDA-Public Use
  Company Number: US-GENZYME-FABR-1003453

PATIENT
  Sex: Male
  Weight: 70 kg

DRUGS (1)
  1. FABRAZYME [Suspect]
     Indication: FABRY^S DISEASE
     Dosage: 1 MG/KG, 1X/W
     Route: 042
     Dates: start: 20051019

REACTIONS (3)
  - Foot fracture [Not Recovered/Not Resolved]
  - Infection [Not Recovered/Not Resolved]
  - Lymphoedema [Not Recovered/Not Resolved]
